FAERS Safety Report 9036228 (Version 2)
Quarter: 2013Q1

REPORT INFORMATION
  Report Type: Spontaneous
  Country: BE (occurrence: BE)
  Receive Date: 20130129
  Receipt Date: 20130201
  Transmission Date: 20140127
  Serious: Yes (Death, Hospitalization)
  Sender: FDA-Public Use
  Company Number: PHHY2013BE008067

PATIENT
  Age: 78 Year
  Sex: Male

DRUGS (6)
  1. ONBREZ [Suspect]
     Indication: CHRONIC OBSTRUCTIVE PULMONARY DISEASE
     Dosage: UNK
     Dates: start: 2012, end: 201211
  2. SPIRIVA [Suspect]
     Indication: CHRONIC OBSTRUCTIVE PULMONARY DISEASE
     Dosage: UNK
     Dates: end: 201211
  3. SERETIDE [Suspect]
     Indication: CHRONIC OBSTRUCTIVE PULMONARY DISEASE
     Dosage: UNK
     Dates: start: 201208, end: 201211
  4. COVERSYL [Concomitant]
     Indication: HYPERTENSION
     Dosage: UNK
     Dates: end: 201211
  5. NOBETEN [Concomitant]
     Indication: HYPERTENSION
     Dosage: UNK
     Dates: end: 201211
  6. VASEXTEN [Concomitant]
     Indication: HYPERTENSION
     Dosage: UNK
     Dates: end: 201211

REACTIONS (3)
  - Death [Fatal]
  - Chronic obstructive pulmonary disease [Unknown]
  - Dyspnoea [Unknown]
